FAERS Safety Report 6972718-8 (Version None)
Quarter: 2010Q3

REPORT INFORMATION
  Report Type: 
  Country: None (occurrence: None)
  Receive Date: 20100909
  Receipt Date: 20100831
  Transmission Date: 20110219
  Serious: Yes (Death)
  Sender: FDA-Public Use
  Company Number: TW-BAXTER-2010BH022750

PATIENT
  Sex: Male

DRUGS (4)
  1. DIANEAL [Suspect]
     Indication: PERITONEAL DIALYSIS
     Route: 033
     Dates: start: 20090301
  2. DIANEAL [Suspect]
     Route: 033
     Dates: start: 20090301
  3. DIANEAL [Suspect]
     Indication: PERITONEAL DIALYSIS
     Route: 033
     Dates: start: 20090301
  4. DIANEAL [Suspect]
     Route: 033
     Dates: start: 20090301

REACTIONS (1)
  - COMPLETED SUICIDE [None]
